FAERS Safety Report 22309222 (Version 1)
Quarter: 2023Q2

REPORT INFORMATION
  Report Type: Spontaneous
  Country: PT (occurrence: PT)
  Receive Date: 20230511
  Receipt Date: 20230511
  Transmission Date: 20230722
  Serious: Yes (Hospitalization)
  Sender: FDA-Public Use
  Company Number: None

PATIENT
  Age: 53 Year
  Sex: Female

DRUGS (13)
  1. TRAZIMERA [Suspect]
     Active Substance: TRASTUZUMAB-QYYP
     Indication: Breast cancer
     Dosage: 8 MG/KG (1ST INTAKE - LOADING DOSE)
     Route: 042
     Dates: start: 20230302, end: 20230302
  2. TRAZIMERA [Suspect]
     Active Substance: TRASTUZUMAB-QYYP
     Dosage: 6 MG/KG FOR ONE YEAR (18 CYCLES) EVERY 3 WEEKS
  3. FUROSEMIDE [Concomitant]
     Active Substance: FUROSEMIDE
     Dosage: 40 MG, 1X/DAY (24H)
     Route: 048
  4. PACLITAXEL [Concomitant]
     Active Substance: PACLITAXEL
     Indication: Breast cancer
     Dosage: D1 - 80 MG/M2, WEEKLY FOR 12 CYCLES. FINAL BETWEEN 0.3 AND 1.2MG/ML; ADMINISTER FOR 1H
     Route: 042
     Dates: start: 20230302, end: 20230316
  5. TRAZODONE [Concomitant]
     Active Substance: TRAZODONE HYDROCHLORIDE
     Dosage: 100 MG, 1X/DAY (FREQ:24 H; TRAZODONE 150 MG 2/3 AT BEDTIME)
     Route: 048
  6. DEXAMETASONA KRKA [Concomitant]
     Indication: Nausea
     Dosage: 4 MG, 1X/DAY (4 MG 1X/DAY AS NEEDED 4 DAYS)
     Route: 048
  7. METOCLOPRAMIDE [Concomitant]
     Active Substance: METOCLOPRAMIDE
     Route: 048
  8. ESCITALOPRAM [Concomitant]
     Active Substance: ESCITALOPRAM OXALATE
     Dosage: 20 MG, 1X/DAY (FREQ:24 H)
     Route: 048
  9. SIMVASTATIN [Concomitant]
     Active Substance: SIMVASTATIN
     Dosage: 20 MG, 1X/DAY (FREQ:24 H)
     Route: 048
  10. PERJETA [Concomitant]
     Active Substance: PERTUZUMAB
     Indication: Breast cancer
     Dosage: INITIAL LOADING DOSE 840MG INTRAVENOUS INFUSION FOR 60MIN
     Route: 042
     Dates: start: 20230302, end: 20230302
  11. PERJETA [Concomitant]
     Active Substance: PERTUZUMAB
     Dosage: MAINTENANCE DOSE 420MG ADMINISTERED EVERY 3 WEEKS DURING 30 TO 60 MINUTES (4 CYCLES)
  12. GLUCOSAMINE [Concomitant]
     Active Substance: GLUCOSAMINE
     Route: 048
  13. EDOXABAN TOSYLATE [Concomitant]
     Active Substance: EDOXABAN TOSYLATE
     Dosage: 60 MG, 1X/DAY (FREQ:24 H)
     Route: 048

REACTIONS (3)
  - Systemic inflammatory response syndrome [Recovered/Resolved]
  - Pneumonitis [Recovered/Resolved]
  - Acute respiratory distress syndrome [Recovered/Resolved]

NARRATIVE: CASE EVENT DATE: 20230327
